FAERS Safety Report 14368480 (Version 2)
Quarter: 2018Q1

REPORT INFORMATION
  Report Type: Spontaneous
  Country: GB (occurrence: GB)
  Receive Date: 20180109
  Receipt Date: 20180116
  Transmission Date: 20180509
  Serious: Yes (Hospitalization, Other)
  Sender: FDA-Public Use
  Company Number: GB-ABBVIE-18P-167-2216938-00

PATIENT
  Age: 53 Year
  Sex: Male

DRUGS (3)
  1. VALPROATE SODIUM. [Suspect]
     Active Substance: VALPROATE SODIUM
     Indication: FRONTAL LOBE EPILEPSY
     Route: 065
  2. CLOBAZAM [Suspect]
     Active Substance: CLOBAZAM
     Indication: FRONTAL LOBE EPILEPSY
     Route: 065
  3. CARBAMAZEPINE. [Suspect]
     Active Substance: CARBAMAZEPINE
     Indication: FRONTAL LOBE EPILEPSY
     Route: 065

REACTIONS (2)
  - Exostosis [Unknown]
  - Generalised tonic-clonic seizure [Unknown]
